FAERS Safety Report 8831061 (Version 2)
Quarter: 2012Q4

REPORT INFORMATION
  Report Type: 
  Country: GB (occurrence: GB)
  Receive Date: 20121009
  Receipt Date: 20121109
  Transmission Date: 20130627
  Serious: Yes (Hospitalization)
  Sender: FDA-Public Use
  Company Number: PHFR2012GB005061

PATIENT
  Age: 30 Year
  Sex: Male
  Weight: 67 kg

DRUGS (6)
  1. CLOZARIL [Suspect]
     Indication: SCHIZOPHRENIA, PARANOID TYPE
     Route: 048
     Dates: start: 20010701
  2. CLOZARIL [Suspect]
     Dosage: 500 mg, daily
     Route: 048
     Dates: start: 2004
  3. CLOZARIL [Suspect]
     Dosage: 1.4 g, UNK
     Route: 048
     Dates: start: 20120918
  4. VITAMIN B COMPLEX [Concomitant]
     Indication: ALCOHOL ABUSE
     Route: 048
  5. ACAMPROSATE [Concomitant]
     Indication: ALCOHOL ABUSE
     Dosage: 666 mg, daily
     Route: 048
  6. THIAMINE [Concomitant]
     Indication: ALCOHOL ABUSE
     Dosage: 50 mg, QID
     Route: 048

REACTIONS (8)
  - Suicide attempt [Unknown]
  - Hallucination, auditory [Unknown]
  - Emotional distress [Unknown]
  - Mental impairment [Unknown]
  - Overdose [Recovered/Resolved]
  - Tooth abscess [Unknown]
  - Neutrophil count increased [Unknown]
  - White blood cell count increased [Unknown]
